FAERS Safety Report 17397705 (Version 3)
Quarter: 2020Q1

REPORT INFORMATION
  Report Type: Spontaneous
  Country: AU (occurrence: AU)
  Receive Date: 20200210
  Receipt Date: 20200227
  Transmission Date: 20200409
  Serious: Yes (Other)
  Sender: FDA-Public Use
  Company Number: AU-JNJFOC-20200200516

PATIENT
  Age: 13 Year
  Sex: Female

DRUGS (2)
  1. STELARA [Suspect]
     Active Substance: USTEKINUMAB
     Route: 058
     Dates: start: 20191206
  2. STELARA [Suspect]
     Active Substance: USTEKINUMAB
     Indication: CROHN^S DISEASE
     Route: 058

REACTIONS (6)
  - Off label use [Unknown]
  - Crohn^s disease [Unknown]
  - Product use issue [Unknown]
  - Lung disorder [Unknown]
  - Drug ineffective [Unknown]
  - Infection [Unknown]
